FAERS Safety Report 9116967 (Version 1)
Quarter: 2013Q1

REPORT INFORMATION
  Report Type: Spontaneous
  Country: US (occurrence: US)
  Receive Date: 20130225
  Receipt Date: 20130225
  Transmission Date: 20140127
  Serious: Yes (Other)
  Sender: FDA-Public Use
  Company Number: US-SANOFI-AVENTIS-2013SA016948

PATIENT
  Age: 64 Year
  Sex: Female

DRUGS (2)
  1. LANTUS SOLOSTAR [Suspect]
     Dosage: DOSE:30 UNIT(S)
     Route: 051
     Dates: start: 201211
  2. SOLOSTAR [Suspect]
     Dates: start: 201211

REACTIONS (1)
  - Blindness [Recovering/Resolving]
